FAERS Safety Report 18073901 (Version 1)
Quarter: 2020Q3

REPORT INFORMATION
  Report Type: Spontaneous
  Country: FR (occurrence: FR)
  Receive Date: 20200727
  Receipt Date: 20200727
  Transmission Date: 20201103
  Serious: Yes (Hospitalization)
  Sender: FDA-Public Use
  Company Number: FR-JNJFOC-20200724173

PATIENT
  Age: 72 Year
  Sex: Male

DRUGS (6)
  1. THERALENE [Suspect]
     Active Substance: TRIMEPRAZINE
     Indication: PSYCHOTIC DISORDER
     Route: 048
     Dates: start: 201903
  2. CYAMEMAZINE [Suspect]
     Active Substance: CYAMEMAZINE
     Indication: PSYCHOTIC DISORDER
     Route: 048
     Dates: start: 2017
  3. DIAZEPAM. [Suspect]
     Active Substance: DIAZEPAM
     Indication: PSYCHOTIC DISORDER
     Route: 048
     Dates: start: 2019
  4. HALDOL DECANOAS [Suspect]
     Active Substance: HALOPERIDOL DECANOATE
     Indication: PSYCHOTIC DISORDER
     Dosage: ; AS REQUIRED
     Route: 030
     Dates: start: 2019
  5. SERESTA [Suspect]
     Active Substance: OXAZEPAM
     Indication: PSYCHOTIC DISORDER
     Route: 048
  6. NOZINAN                            /00038601/ [Suspect]
     Active Substance: LEVOMEPROMAZINE
     Indication: PSYCHOTIC DISORDER
     Route: 030

REACTIONS (1)
  - Volvulus [Recovered/Resolved with Sequelae]

NARRATIVE: CASE EVENT DATE: 20191203
